APPROVED DRUG PRODUCT: ATRACURIUM BESYLATE PRESERVATIVE FREE
Active Ingredient: ATRACURIUM BESYLATE
Strength: 10MG/ML
Dosage Form/Route: INJECTABLE;INJECTION
Application: A090782 | Product #001 | TE Code: AP
Applicant: HOSPIRA INC
Approved: Oct 18, 2012 | RLD: No | RS: No | Type: RX